FAERS Safety Report 5940116-1 (Version None)
Quarter: 2008Q4

REPORT INFORMATION
  Report Type: 
  Country: None (occurrence: None)
  Receive Date: 20081104
  Receipt Date: 20080307
  Transmission Date: 20090506
  Serious: No
  Sender: FDA-Public Use
  Company Number: US-BAYER-200811148BCC

PATIENT
  Age: 3 Year
  Sex: Female
  Weight: 17 kg

DRUGS (2)
  1. ALEVE [Suspect]
     Route: 048
     Dates: start: 20080307
  2. ZANTAC [Concomitant]

REACTIONS (1)
  - NO ADVERSE EVENT [None]
